FAERS Safety Report 5833402-7 (Version None)
Quarter: 2008Q3

REPORT INFORMATION
  Report Type: 
  Country: None (occurrence: None)
  Receive Date: 20080805
  Receipt Date: 20080729
  Transmission Date: 20090109
  Serious: Yes (Other)
  Sender: FDA-Public Use
  Company Number: US-ASTRAZENECA-2008UW14760

PATIENT
  Age: 62 Year
  Sex: Female
  Weight: 78 kg

DRUGS (4)
  1. ATACAND [Suspect]
     Indication: HYPERTENSION
     Route: 048
     Dates: start: 20030101
  2. ATACAND [Suspect]
     Indication: RENAL DISORDER
     Route: 048
     Dates: start: 20030101
  3. VITAMIN D [Concomitant]
     Dates: start: 20080701
  4. INSULIN [Concomitant]

REACTIONS (3)
  - BEDRIDDEN [None]
  - MUSCULOSKELETAL STIFFNESS [None]
  - MYALGIA [None]
